FAERS Safety Report 4970649-6 (Version None)
Quarter: 2006Q1

REPORT INFORMATION
  Report Type: 
  Country: None (occurrence: None)
  Receive Date: 20060208
  Receipt Date: 20050315
  Transmission Date: 20060701
  Serious: Yes (Other)
  Sender: FDA-Public Use
  Company Number: PHEH2005US03173

PATIENT
  Age: 2 Year
  Sex: Male

DRUGS (1)
  1. ELIDEL [Suspect]
     Indication: ECZEMA
     Dosage: PRN, TOPICAL
     Route: 061
     Dates: start: 20040101, end: 20041201

REACTIONS (1)
  - PNEUMONIA [None]
